FAERS Safety Report 9328420 (Version 1)
Quarter: 2013Q2

REPORT INFORMATION
  Report Type: Spontaneous
  Country: US (occurrence: US)
  Receive Date: 20130604
  Receipt Date: 20130604
  Transmission Date: 20140414
  Serious: Yes (Other)
  Sender: FDA-Public Use
  Company Number: US-SANOFI-AVENTIS-2011SA040517

PATIENT
  Age: 64 Year
  Sex: Male
  Weight: 82 kg

DRUGS (4)
  1. LANTUS [Suspect]
     Indication: TYPE 2 DIABETES MELLITUS
     Dosage: DOSE:26 UNIT(S)
     Route: 058
     Dates: start: 20110619, end: 20110622
  2. SOLOSTAR [Suspect]
     Indication: TYPE 2 DIABETES MELLITUS
     Dates: start: 20110619, end: 20110622
  3. METFORMIN [Concomitant]
     Dates: start: 20110602
  4. SIMVASTATIN [Concomitant]
     Indication: BLOOD PRESSURE
     Dates: start: 20110519

REACTIONS (14)
  - Hypersensitivity [Unknown]
  - Eye swelling [Unknown]
  - Eye disorder [Unknown]
  - Burning sensation [Recovered/Resolved]
  - Dark circles under eyes [Not Recovered/Not Resolved]
  - Hyperhidrosis [Unknown]
  - Skin exfoliation [Unknown]
  - Alopecia [Unknown]
  - Dyspnoea [Unknown]
  - Pharyngeal oedema [Unknown]
  - Blood glucose increased [Recovering/Resolving]
  - Abdominal pain upper [Not Recovered/Not Resolved]
  - Injection site discolouration [Not Recovered/Not Resolved]
  - Injection site pain [Not Recovered/Not Resolved]
